FAERS Safety Report 5128505-9 (Version None)
Quarter: 2006Q4

REPORT INFORMATION
  Report Type: 
  Country: None (occurrence: None)
  Receive Date: 20061017
  Receipt Date: 20061005
  Transmission Date: 20070319
  Serious: Yes (Hospitalization)
  Sender: FDA-Public Use
  Company Number: US-ROCHE-466553

PATIENT
  Age: 83 Year
  Sex: Female

DRUGS (5)
  1. XELODA [Suspect]
     Indication: BREAST CANCER
     Route: 048
     Dates: start: 20060612, end: 20061001
  2. ARICEPT [Concomitant]
     Route: 048
  3. NAMENDA [Concomitant]
     Route: 048
     Dates: start: 20040615
  4. DIOVAN [Concomitant]
     Indication: HYPERTENSION
     Route: 048
  5. BUMEX [Concomitant]
     Indication: HYPERTENSION

REACTIONS (8)
  - DECREASED APPETITE [None]
  - DEHYDRATION [None]
  - DEMENTIA ALZHEIMER'S TYPE [None]
  - FUNGAL INFECTION [None]
  - HYPOTENSION [None]
  - NON-CARDIAC CHEST PAIN [None]
  - SKIN DISCOLOURATION [None]
  - SKIN EXFOLIATION [None]
